FAERS Safety Report 10645368 (Version 2)
Quarter: 2014Q4

REPORT INFORMATION
  Report Type: Spontaneous
  Country: US (occurrence: US)
  Receive Date: 20141211
  Receipt Date: 20141211
  Transmission Date: 20150529
  Serious: Yes (Death, Other)
  Sender: FDA-Public Use
  Company Number: PHEH2012US026141

PATIENT
  Age: 45 Year
  Sex: Female
  Weight: 117.4 kg

DRUGS (8)
  1. ZOMETA [Suspect]
     Active Substance: ZOLEDRONIC ACID
     Indication: METASTASES TO BONE
     Route: 042
  2. FEMARA [Concomitant]
     Active Substance: LETROZOLE
     Indication: PRODUCT USED FOR UNKNOWN INDICATION
     Route: 065
  3. TAXOL [Concomitant]
     Active Substance: PACLITAXEL
     Indication: PRODUCT USED FOR UNKNOWN INDICATION
     Route: 065
  4. AREDIA [Suspect]
     Active Substance: PAMIDRONATE DISODIUM
     Indication: PRODUCT USED FOR UNKNOWN INDICATION
     Route: 041
  5. CYTOXAN [Concomitant]
     Active Substance: CYCLOPHOSPHAMIDE
     Indication: PRODUCT USED FOR UNKNOWN INDICATION
     Route: 065
  6. TAMOXIFEN [Concomitant]
     Active Substance: TAMOXIFEN
     Indication: MENOPAUSAL SYMPTOMS
     Route: 065
  7. ZOMETA [Suspect]
     Active Substance: ZOLEDRONIC ACID
     Indication: BREAST CANCER METASTATIC
     Dosage: UNK
     Route: 042
     Dates: start: 200907, end: 201004
  8. ADRIAMYCIN [Concomitant]
     Active Substance: DOXORUBICIN HYDROCHLORIDE
     Indication: PRODUCT USED FOR UNKNOWN INDICATION
     Route: 065

REACTIONS (189)
  - Impaired healing [Unknown]
  - Diabetes mellitus [Unknown]
  - Respiratory disorder [Unknown]
  - Arthritis [Unknown]
  - Anxiety [Unknown]
  - Polyneuropathy [Unknown]
  - Bone cancer [Unknown]
  - Radiation skin injury [Unknown]
  - Metastases to spine [Unknown]
  - Dehydration [Unknown]
  - Injury [Unknown]
  - Diabetic nephropathy [Unknown]
  - Paronychia [Unknown]
  - Leukopenia [Unknown]
  - Fluid overload [Unknown]
  - Central nervous system lesion [Unknown]
  - Pulmonary oedema [Unknown]
  - Fatigue [Unknown]
  - Obesity [Unknown]
  - Flank pain [Unknown]
  - Arthralgia [Unknown]
  - Pallor [Unknown]
  - Sleep disorder [Unknown]
  - Neuropathy peripheral [Unknown]
  - Fibromyalgia [Unknown]
  - Atelectasis [Unknown]
  - Osteoarthritis [Unknown]
  - Hepatosplenomegaly [Unknown]
  - Synovial cyst [Unknown]
  - Migraine [Unknown]
  - Exostosis [Unknown]
  - Corneal oedema [Unknown]
  - Nail bed tenderness [Unknown]
  - Aortic valve incompetence [Unknown]
  - Tricuspid valve incompetence [Unknown]
  - Fungal skin infection [Unknown]
  - Disturbance in attention [Unknown]
  - Oesophagitis [Unknown]
  - Alopecia [Unknown]
  - Joint swelling [Unknown]
  - Pelvic pain [Unknown]
  - Asthenia [Unknown]
  - Malaise [Unknown]
  - Pain in extremity [Unknown]
  - Gait disturbance [Unknown]
  - Bacterial disease carrier [Unknown]
  - Hand fracture [Unknown]
  - Scoliosis [Unknown]
  - Osteosclerosis [Unknown]
  - Amnesia [Unknown]
  - Bronchitis [Unknown]
  - Deafness [Unknown]
  - Deformity [Unknown]
  - Bone lesion [Unknown]
  - Dry eye [Unknown]
  - Diabetic retinopathy [Unknown]
  - Retinal haemorrhage [Unknown]
  - Aortic arteriosclerosis [Unknown]
  - Chest pain [Unknown]
  - Facial pain [Unknown]
  - Stress [Unknown]
  - Myopia [Unknown]
  - Musculoskeletal chest pain [Unknown]
  - Osteonecrosis of jaw [Unknown]
  - Fungal infection [Unknown]
  - Carpal tunnel syndrome [Unknown]
  - Intervertebral disc protrusion [Unknown]
  - Asthma [Unknown]
  - Renal cyst [Unknown]
  - Arthropathy [Unknown]
  - Hilar lymphadenopathy [Unknown]
  - Meniscal degeneration [Unknown]
  - Joint stiffness [Unknown]
  - Pollakiuria [Unknown]
  - Macular degeneration [Unknown]
  - Blister [Unknown]
  - Hepatic lesion [Unknown]
  - Pulmonary fibrosis [Unknown]
  - Interstitial lung disease [Unknown]
  - Mental status changes [Unknown]
  - Tinnitus [Unknown]
  - Constipation [Unknown]
  - Abdominal pain [Unknown]
  - Dysphagia [Unknown]
  - Anaemia [Unknown]
  - Chills [Unknown]
  - Confusional state [Unknown]
  - Sepsis [Unknown]
  - Neoplasm progression [Unknown]
  - Lymphoedema [Unknown]
  - Hepatomegaly [Unknown]
  - Memory impairment [Unknown]
  - Depression [Unknown]
  - Abdominal mass [Unknown]
  - Trigger finger [Unknown]
  - Uterine enlargement [Unknown]
  - Intervertebral disc degeneration [Unknown]
  - Abscess [Unknown]
  - Plantar fasciitis [Unknown]
  - Seroma [Unknown]
  - Sexual dysfunction [Unknown]
  - Paraesthesia [Unknown]
  - Pain [Unknown]
  - Corneal degeneration [Unknown]
  - Cataract nuclear [Unknown]
  - Corneal endothelial cell loss [Unknown]
  - Inflammation [Unknown]
  - Folliculitis [Unknown]
  - Emotional distress [Unknown]
  - Cardiomegaly [Unknown]
  - Left ventricular dysfunction [Unknown]
  - Dilatation ventricular [Unknown]
  - Peripheral swelling [Unknown]
  - Neck pain [Unknown]
  - Tachycardia [Unknown]
  - Weight increased [Unknown]
  - Hypotension [Unknown]
  - Somnolence [Unknown]
  - Dry skin [Unknown]
  - Hypokalaemia [Unknown]
  - Hyperhidrosis [Unknown]
  - Sinus headache [Unknown]
  - Infection [Unknown]
  - Metastases to bone [Unknown]
  - Haemangioma [Unknown]
  - Fall [Unknown]
  - Pyelonephritis [Unknown]
  - Urinary tract infection [Unknown]
  - Vertebral foraminal stenosis [Unknown]
  - Lenticular opacities [Unknown]
  - Neutropenia [Unknown]
  - Aortic calcification [Unknown]
  - Generalised oedema [Unknown]
  - Splenomegaly [Unknown]
  - Pleural effusion [Unknown]
  - Gastrooesophageal reflux disease [Unknown]
  - Hot flush [Unknown]
  - Temperature intolerance [Unknown]
  - Respiratory tract congestion [Unknown]
  - Skin hyperpigmentation [Unknown]
  - Appetite disorder [Unknown]
  - Death [Fatal]
  - Haemorrhage [Unknown]
  - Vision blurred [Unknown]
  - Abdominal hernia [Unknown]
  - Tooth fracture [Unknown]
  - Dyspnoea [Unknown]
  - Dizziness [Unknown]
  - Uterine leiomyoma [Unknown]
  - Phlebitis superficial [Unknown]
  - Metastases to lymph nodes [Unknown]
  - Diabetic gastroparesis [Unknown]
  - Kyphosis [Unknown]
  - Anhedonia [Unknown]
  - Lung infiltration [Unknown]
  - Pericardial effusion [Unknown]
  - Nausea [Unknown]
  - Oropharyngeal pain [Unknown]
  - Breath odour [Unknown]
  - Bone pain [Unknown]
  - Cough [Unknown]
  - Myalgia [Unknown]
  - Vomiting [Unknown]
  - Back pain [Unknown]
  - Pruritus [Unknown]
  - Diarrhoea [Unknown]
  - Malignant neoplasm progression [Unknown]
  - Spinal osteoarthritis [Unknown]
  - Hypertension [Unknown]
  - Haematoma [Unknown]
  - Incisional hernia [Unknown]
  - Spondylolisthesis [Unknown]
  - Nodule [Unknown]
  - Spinal column stenosis [Unknown]
  - Syringomyelia [Unknown]
  - Affective disorder [Unknown]
  - Lumbar radiculopathy [Unknown]
  - Hypoaesthesia [Unknown]
  - Bone loss [Unknown]
  - Hypoglycaemia [Unknown]
  - Cystitis [Unknown]
  - Febrile neutropenia [Unknown]
  - Thrombocytopenia [Unknown]
  - Pancytopenia [Unknown]
  - Metastases to lung [Unknown]
  - Ear pain [Unknown]
  - Pyrexia [Unknown]
  - Contusion [Unknown]
  - Lethargy [Unknown]

NARRATIVE: CASE EVENT DATE: 2009
